FAERS Safety Report 8927092 (Version 1)
Quarter: 2012Q4

REPORT INFORMATION
  Report Type: Report from Study
  Country: DE (occurrence: DE)
  Receive Date: 20121127
  Receipt Date: 20121127
  Transmission Date: 20130627
  Serious: Yes (Death, Hospitalization)
  Sender: FDA-Public Use
  Company Number: DE-ROCHE-1157925

PATIENT
  Sex: Female
  Weight: 56 kg

DRUGS (1)
  1. BEVACIZUMAB [Suspect]
     Indication: METASTATIC RENAL CELL CARCINOMA
     Route: 042
     Dates: start: 20120827, end: 20120827

REACTIONS (4)
  - Neoplasm malignant [Fatal]
  - Pain in extremity [Not Recovered/Not Resolved]
  - Rash pustular [Unknown]
  - Metastases to bone [Not Recovered/Not Resolved]
